FAERS Safety Report 4939559-4 (Version None)
Quarter: 2006Q1

REPORT INFORMATION
  Report Type: 
  Country: None (occurrence: None)
  Receive Date: 20060306
  Receipt Date: 20060216
  Transmission Date: 20060701
  Serious: Yes (Death)
  Sender: FDA-Public Use
  Company Number: S06-FRA-00829-01

PATIENT
  Sex: Female

DRUGS (1)
  1. MEMANTINE HCL [Suspect]
     Dosage: 20 MG QD PO
     Route: 048

REACTIONS (1)
  - MYOCARDIAL INFARCTION [None]
